FAERS Safety Report 9164228 (Version 1)
Quarter: 2013Q1

REPORT INFORMATION
  Report Type: Spontaneous
  Country: FI (occurrence: None)
  Receive Date: 20130226
  Receipt Date: 20130226
  Transmission Date: 20140127
  Serious: No
  Sender: FDA-Public Use
  Company Number: ENT 2013-0039

PATIENT
  Sex: Male
  Weight: 76 kg

DRUGS (3)
  1. COMTAN (ENTACAPONE) [Suspect]
     Indication: PARKINSON^S DISEASE
  2. PROLOPA [Concomitant]
  3. SIFROL [Suspect]

REACTIONS (3)
  - Wrong technique in drug usage process [None]
  - Therapy cessation [None]
  - Gait disturbance [None]
